FAERS Safety Report 22946925 (Version 5)
Quarter: 2024Q2

REPORT INFORMATION
  Report Type: Spontaneous
  Country: NL (occurrence: NL)
  Receive Date: 20230915
  Receipt Date: 20240411
  Transmission Date: 20240716
  Serious: Yes (Life-Threatening, Hospitalization, Other)
  Sender: FDA-Public Use
  Company Number: None

PATIENT
  Age: 11 Year
  Sex: Male
  Weight: 66 kg

DRUGS (7)
  1. ROCURONIUM BROMIDE [Suspect]
     Active Substance: ROCURONIUM BROMIDE
     Indication: General anaesthesia
     Dosage: 1MG/KG
     Dates: start: 20230302
  2. SUGAMMADEX SODIUM [Suspect]
     Active Substance: SUGAMMADEX SODIUM
     Indication: Neuromuscular blockade
     Dosage: 2MG/KG
     Dates: start: 20230302
  3. SEVOFLURANE [Concomitant]
     Active Substance: SEVOFLURANE
     Dosage: INHALATION GAS
  4. DICLOFENAC SODIUM [Concomitant]
     Active Substance: DICLOFENAC\DICLOFENAC SODIUM
     Dosage: INJECTION FLUID, 25 MG/ML (MILLIGRAM PER MILLILITER)
  5. PROPOFOL [Concomitant]
     Active Substance: PROPOFOL
     Dosage: EMULSION FOR INJECTION, 10 MG/ML (MILLIGRAM PER MILLILITER)
  6. ACETAMINOPHEN [Concomitant]
     Active Substance: ACETAMINOPHEN
     Dosage: INFUSION FLUID, 10 MG/ML (MILLIGRAM PER MILLILITER)
  7. MORPHINE [Concomitant]
     Active Substance: MORPHINE
     Dosage: UNK

REACTIONS (1)
  - Anaphylactic reaction [Recovered/Resolved]
